APPROVED DRUG PRODUCT: STATROL
Active Ingredient: NEOMYCIN SULFATE; POLYMYXIN B SULFATE
Strength: EQ 3.5MG BASE/GM;10,000 UNITS/GM
Dosage Form/Route: OINTMENT;OPHTHALMIC
Application: N050344 | Product #002
Applicant: ALCON LABORATORIES INC
Approved: Approved Prior to Jan 1, 1982 | RLD: No | RS: No | Type: DISCN